FAERS Safety Report 26075252 (Version 2)
Quarter: 2025Q4

REPORT INFORMATION
  Report Type: Spontaneous
  Country: EU (occurrence: EU)
  Receive Date: 20251121
  Receipt Date: 20251202
  Transmission Date: 20260117
  Serious: Yes (Other)
  Sender: NOVARTIS
  Company Number: EU-002147023-NVSC2025DE147258

PATIENT
  Sex: Male

DRUGS (6)
  1. SCEMBLIX [Suspect]
     Active Substance: ASCIMINIB HYDROCHLORIDE
     Indication: Product used for unknown indication
     Dosage: 40 MG, QD
     Route: 048
     Dates: start: 20250901, end: 202509
  2. SCEMBLIX [Suspect]
     Active Substance: ASCIMINIB HYDROCHLORIDE
     Dosage: 20 MG, QD
     Route: 048
     Dates: start: 202509, end: 202509
  3. SCEMBLIX [Suspect]
     Active Substance: ASCIMINIB HYDROCHLORIDE
     Dosage: 20 MG, QD
     Route: 048
     Dates: start: 202509, end: 2025
  4. SCEMBLIX [Suspect]
     Active Substance: ASCIMINIB HYDROCHLORIDE
     Dosage: 8X40 MG, IN ONE MONTH
     Route: 048
     Dates: start: 2025, end: 2025
  5. SCEMBLIX [Suspect]
     Active Substance: ASCIMINIB HYDROCHLORIDE
     Dosage: 4X20 MG PER WEEK
     Route: 048
     Dates: start: 2025, end: 2025
  6. SCEMBLIX [Suspect]
     Active Substance: ASCIMINIB HYDROCHLORIDE
     Dosage: UNK
     Route: 048
     Dates: start: 2025

REACTIONS (12)
  - Immune system disorder [Recovering/Resolving]
  - Haematoma [Recovering/Resolving]
  - Headache [Recovered/Resolved]
  - Myalgia [Recovered/Resolved]
  - Chest pain [Recovering/Resolving]
  - Nausea [Recovering/Resolving]
  - Arthralgia [Recovering/Resolving]
  - Pain in extremity [Recovered/Resolved]
  - Oral infection [Unknown]
  - Memory impairment [Unknown]
  - Incorrect dose administered [Unknown]
  - Contusion [Unknown]

NARRATIVE: CASE EVENT DATE: 20250101
